FAERS Safety Report 11510549 (Version 1)
Quarter: 2015Q3

REPORT INFORMATION
  Report Type: Spontaneous
  Country: US (occurrence: US)
  Receive Date: 20150915
  Receipt Date: 20150915
  Transmission Date: 20151125
  Serious: No
  Sender: FDA-Public Use
  Company Number: US-JNJFOC-20150807082

PATIENT
  Age: 62 Year
  Sex: Female

DRUGS (3)
  1. TYLENOL EXTRA STRENGTH [Suspect]
     Active Substance: ACETAMINOPHEN
     Indication: PAIN
     Route: 048
  2. ALEVE PM (NAPROXEN) [Concomitant]
     Indication: PAIN
     Route: 065
  3. ALEVE PM (DIPHENHYDRAMINE) [Concomitant]
     Indication: PAIN
     Route: 065

REACTIONS (2)
  - Therapeutic response unexpected [Unknown]
  - Somnolence [Recovered/Resolved]

NARRATIVE: CASE EVENT DATE: 20150809
